FAERS Safety Report 23554364 (Version 1)
Quarter: 2024Q1

REPORT INFORMATION
  Report Type: Spontaneous
  Country: JP (occurrence: None)
  Receive Date: 20240222
  Receipt Date: 20240222
  Transmission Date: 20240410
  Serious: Yes (Death)
  Sender: FDA-Public Use
  Company Number: 2024A043524

PATIENT
  Age: 84 Year
  Sex: Female

DRUGS (1)
  1. ONDEXXYA [Suspect]
     Active Substance: ANDEXANET ALFA
     Indication: Subdural haematoma
     Dosage: METHOD A: 400 MG IV AT A RATE OF 30 MG/MIN, FOLLOWED BY 480 MG IV AT A RATE OF 4 MG/MIN FOR 2 H
     Route: 042

REACTIONS (1)
  - Pulmonary embolism [Fatal]
